FAERS Safety Report 22029787 (Version 1)
Quarter: 2023Q1

REPORT INFORMATION
  Report Type: Spontaneous
  Country: AT (occurrence: AT)
  Receive Date: 20230223
  Receipt Date: 20230223
  Transmission Date: 20230417
  Serious: Yes (Other)
  Sender: FDA-Public Use
  Company Number: AT-AMGEN-AUTSP2023028606

PATIENT

DRUGS (1)
  1. TRASTUZUMAB [Suspect]
     Active Substance: TRASTUZUMAB
     Indication: Breast cancer
     Dosage: UNK
     Route: 065

REACTIONS (9)
  - Tricuspid valve incompetence [Unknown]
  - Aortic valve calcification [Unknown]
  - Aortic valve stenosis [Unknown]
  - Mitral valve thickening [Unknown]
  - Mitral valve calcification [Unknown]
  - Aortic valve sclerosis [Unknown]
  - Cardiomyopathy [Unknown]
  - Blood pressure systolic increased [Unknown]
  - Cardiac disorder [Unknown]
